FAERS Safety Report 7375049 (Version 2)
Quarter: 2013Q2

REPORT INFORMATION
  Report Type: Spontaneous
  Country: US (occurrence: US)
  Receive Date: 20100503
  Receipt Date: 20130403
  Transmission Date: 20140414
  Serious: Yes (Other)
  Sender: FDA-Public Use
  Company Number: US-ASTRAZENECA-2009UW16093

PATIENT
  Age: 76 Year
  Sex: Female
  Weight: 51.3 kg

DRUGS (3)
  1. NEXIUM [Suspect]
     Route: 048
  2. NEXIUM [Suspect]
     Route: 048
     Dates: start: 20130323
  3. IRON [Concomitant]

REACTIONS (5)
  - Cerebrovascular accident [Unknown]
  - Gastrooesophageal reflux disease [Unknown]
  - Adverse event [Unknown]
  - Hypertension [Unknown]
  - Intentional drug misuse [Unknown]
